FAERS Safety Report 7001818-1 (Version None)
Quarter: 2010Q3

REPORT INFORMATION
  Report Type: 
  Country: None (occurrence: None)
  Receive Date: 20100920
  Receipt Date: 20091015
  Transmission Date: 20110219
  Serious: No
  Sender: FDA-Public Use
  Company Number: US-ASTRAZENECA-2009SE09507

PATIENT
  Sex: Female
  Weight: 56.7 kg

DRUGS (3)
  1. SEROQUEL XR [Suspect]
     Route: 048
  2. SELENIUM [Concomitant]
  3. BUPROPION HCL [Concomitant]

REACTIONS (1)
  - ALOPECIA [None]
